FAERS Safety Report 7487171-8 (Version None)
Quarter: 2011Q2

REPORT INFORMATION
  Report Type: 
  Country: None (occurrence: None)
  Receive Date: 20110510
  Receipt Date: 20110503
  Transmission Date: 20111010
  Serious: Yes (Death)
  Sender: FDA-Public Use
  Company Number: 2011S1000147

PATIENT
  Sex: Female

DRUGS (1)
  1. INOMAX [Suspect]
     Indication: PULMONARY ARTERIAL PRESSURE INCREASED
     Dosage: 40 PPM, CONT. INH
     Route: 055

REACTIONS (2)
  - GENERAL PHYSICAL HEALTH DETERIORATION [None]
  - PULMONARY ARTERIAL PRESSURE INCREASED [None]
